FAERS Safety Report 4359987-8 (Version None)
Quarter: 2004Q2

REPORT INFORMATION
  Report Type: 
  Country: None (occurrence: None)
  Receive Date: 20040518
  Receipt Date: 20040518
  Transmission Date: 20050107
  Serious: Yes (Other)
  Sender: FDA-Public Use
  Company Number: None

PATIENT
  Sex: Male
  Weight: 82 kg

DRUGS (8)
  1. AMIODARONE HCL [Suspect]
     Indication: ATRIAL FIBRILLATION
     Dosage: 200MG QD ORAL
     Route: 048
     Dates: start: 20031017, end: 20040517
  2. LIPITOR [Concomitant]
  3. LOPID [Concomitant]
  4. VIT E [Concomitant]
  5. WARFARIN SODIUM [Concomitant]
  6. SYNTHROID [Concomitant]
  7. VISTARIL [Concomitant]
  8. METOPROLOL [Concomitant]

REACTIONS (1)
  - KERATOPATHY [None]
